FAERS Safety Report 13491808 (Version 5)
Quarter: 2018Q1

REPORT INFORMATION
  Report Type: Spontaneous
  Country: US (occurrence: US)
  Receive Date: 20170427
  Receipt Date: 20180305
  Transmission Date: 20180508
  Serious: Yes (Hospitalization)
  Sender: FDA-Public Use
  Company Number: US-JNJFOC-20170334535

PATIENT
  Sex: Male
  Weight: 73.48 kg

DRUGS (8)
  1. HALDOL DECANOATE [Suspect]
     Active Substance: HALOPERIDOL DECANOATE
     Indication: PSYCHOTIC DISORDER
     Dosage: TWICE??STOPPED IN 1980S OR 1990S
     Route: 030
  2. HALDOL [Suspect]
     Active Substance: HALOPERIDOL
     Indication: PRODUCT USED FOR UNKNOWN INDICATION
     Dosage: TWICE, STOPPED IN 1980S OR 1990S
     Route: 030
  3. HALDOL [Suspect]
     Active Substance: HALOPERIDOL
     Indication: PRODUCT USED FOR UNKNOWN INDICATION
     Dosage: TWICE, STOPPED IN 1980S OR 1990S
     Route: 048
  4. DEPAKOTE [Concomitant]
     Active Substance: DIVALPROEX SODIUM
     Indication: SCHIZOPHRENIA
     Dosage: 1000 MG IN THE MORNING, AND 500 MG??AT NIGHT
     Route: 065
  5. RISPERDAL [Suspect]
     Active Substance: RISPERIDONE
     Indication: AFFECTIVE DISORDER
     Route: 048
  6. RISPERDAL [Suspect]
     Active Substance: RISPERIDONE
     Indication: SCHIZOPHRENIA
     Route: 048
  7. DEPAKOTE [Concomitant]
     Active Substance: DIVALPROEX SODIUM
     Indication: AFFECTIVE DISORDER
     Dosage: 1000 MG IN THE MORNING, AND 500 MG??AT NIGHT
     Route: 065
  8. PROLIXIN [Suspect]
     Active Substance: FLUPHENAZINE HYDROCHLORIDE
     Indication: PRODUCT USED FOR UNKNOWN INDICATION
     Route: 065

REACTIONS (16)
  - Treatment noncompliance [Unknown]
  - Loss of dreaming [Unknown]
  - Depressed mood [Unknown]
  - Anxiety [Unknown]
  - Loss of personal independence in daily activities [Unknown]
  - Myalgia [Recovered/Resolved]
  - Therapeutic response increased [Unknown]
  - Stress [Unknown]
  - Dizziness [Unknown]
  - Akathisia [Unknown]
  - Incoherent [Unknown]
  - Lethargy [Unknown]
  - Psychotic disorder [Unknown]
  - Feeling abnormal [Unknown]
  - Drug ineffective [Unknown]
  - Malaise [Unknown]
